FAERS Safety Report 18191832 (Version 10)
Quarter: 2022Q2

REPORT INFORMATION
  Report Type: Report from Study
  Country: ES (occurrence: ES)
  Receive Date: 20200825
  Receipt Date: 20220512
  Transmission Date: 20220721
  Serious: Yes (Hospitalization)
  Sender: FDA-Public Use
  Company Number: NVSC2020ES225607

PATIENT
  Age: 53 Year
  Sex: Female
  Weight: 54.1 kg

DRUGS (33)
  1. OFATUMUMAB [Suspect]
     Active Substance: OFATUMUMAB
     Indication: Multiple sclerosis relapse
     Dosage: 20 MG, Q4W
     Route: 058
     Dates: start: 20190522, end: 20200715
  2. OFATUMUMAB [Suspect]
     Active Substance: OFATUMUMAB
     Dosage: 20 MG, QMO
     Route: 058
     Dates: start: 20200909
  3. PLACEBO [Suspect]
     Active Substance: UNSPECIFIED INGREDIENT
     Indication: Multiple sclerosis relapse
     Dosage: 1 DF, QW
     Route: 058
     Dates: start: 20190528, end: 20190604
  4. CALCIFEDIOL [Concomitant]
     Active Substance: CALCIFEDIOL
     Indication: General physical condition
     Dosage: 0.266 MG, Q2W
     Route: 048
     Dates: start: 201707
  5. CALCIFEDIOL [Concomitant]
     Active Substance: CALCIFEDIOL
     Indication: Hypovitaminosis
  6. NAPROXEN [Concomitant]
     Active Substance: NAPROXEN
     Indication: Endometriosis
     Dosage: 550 MG, PRN
     Route: 048
     Dates: start: 1987
  7. OXCARBAZEPINE [Concomitant]
     Active Substance: OXCARBAZEPINE
     Indication: Trigeminal neuralgia
     Dosage: 600 MG, BID
     Route: 048
     Dates: start: 20191023
  8. OXYCODONE [Concomitant]
     Active Substance: OXYCODONE
     Indication: Trigeminal neuralgia
     Dosage: 10 MG, PRN
     Route: 042
     Dates: start: 20191031
  9. TRYPTIZOL [Concomitant]
     Active Substance: AMITRIPTYLINE HYDROCHLORIDE
     Indication: Trigeminal neuralgia
     Dosage: 20 MG, QD
     Route: 048
     Dates: start: 20200327, end: 20200402
  10. TRYPTIZOL [Concomitant]
     Active Substance: AMITRIPTYLINE HYDROCHLORIDE
     Dosage: 20 MG, QD
     Route: 048
     Dates: start: 20200403
  11. METHYLPREDNISOLONE [Concomitant]
     Active Substance: METHYLPREDNISOLONE
     Indication: Multiple sclerosis relapse
     Dosage: 100 MG, ONCE
     Route: 042
     Dates: start: 20190522, end: 20190522
  12. METHYLPREDNISOLONE [Concomitant]
     Active Substance: METHYLPREDNISOLONE
     Dosage: 100 MG, QD
     Route: 042
     Dates: start: 20190704, end: 20190706
  13. ACETAMINOPHEN [Concomitant]
     Active Substance: ACETAMINOPHEN
     Indication: Multiple sclerosis relapse
     Dosage: 1 G, ONCE
     Route: 048
     Dates: start: 20190522, end: 20190522
  14. ACETAMINOPHEN [Concomitant]
     Active Substance: ACETAMINOPHEN
     Indication: Trigeminal neuralgia
     Dosage: 1 G, ONCE
     Route: 048
     Dates: start: 20190619, end: 20190619
  15. ACETAMINOPHEN [Concomitant]
     Active Substance: ACETAMINOPHEN
     Indication: Influenza like illness
     Dosage: 1 G, ONCE
     Route: 048
     Dates: start: 20200730, end: 20200805
  16. CETIRIZINE [Concomitant]
     Active Substance: CETIRIZINE HYDROCHLORIDE
     Indication: Multiple sclerosis relapse
     Dosage: 10 MG, ONCE
     Route: 048
     Dates: start: 20190522, end: 20190522
  17. CETIRIZINE [Concomitant]
     Active Substance: CETIRIZINE HYDROCHLORIDE
     Dosage: 10 MG, ONCE
     Route: 048
     Dates: start: 20190619, end: 20190619
  18. GABAPENTIN [Concomitant]
     Active Substance: GABAPENTIN
     Indication: Neuralgia
     Dosage: 300 MG, TID
     Route: 048
     Dates: start: 20190525, end: 20190614
  19. GABAPENTIN [Concomitant]
     Active Substance: GABAPENTIN
     Indication: Trigeminal neuralgia
     Dosage: 400 MG, Q8H
     Route: 048
     Dates: start: 20191013, end: 20191016
  20. GABAPENTIN [Concomitant]
     Active Substance: GABAPENTIN
     Dosage: 600 MG, Q8H
     Route: 048
     Dates: start: 20191017, end: 20201201
  21. GABAPENTIN [Concomitant]
     Active Substance: GABAPENTIN
     Dosage: 600 MG, BID
     Route: 048
     Dates: start: 20201202
  22. ACETYLCYSTEINE [Concomitant]
     Active Substance: ACETYLCYSTEINE
     Indication: Odynophagia
     Dosage: 600 MG, QD
     Route: 048
     Dates: start: 20190612, end: 20190616
  23. IBUPROFEN [Concomitant]
     Active Substance: IBUPROFEN
     Indication: Odynophagia
     Dosage: 600 MG, ONCE
     Route: 048
     Dates: start: 20190612, end: 20190616
  24. OMEPRAZOLE [Concomitant]
     Active Substance: OMEPRAZOLE
     Indication: Prophylaxis
     Dosage: 20 MG, QD
     Route: 048
     Dates: start: 20190704, end: 20190706
  25. OMEPRAZOLE [Concomitant]
     Active Substance: OMEPRAZOLE
     Dosage: 20 MG, QD
     Route: 048
     Dates: start: 20200730, end: 20200805
  26. LIORESAL [Concomitant]
     Active Substance: BACLOFEN
     Indication: Trigeminal neuralgia
     Dosage: 10 MG, Q24H
     Route: 048
     Dates: start: 20191016, end: 20191018
  27. LIORESAL [Concomitant]
     Active Substance: BACLOFEN
     Dosage: 5 MG, TID
     Route: 048
     Dates: start: 20200430, end: 20201201
  28. LIORESAL [Concomitant]
     Active Substance: BACLOFEN
     Dosage: 5 MG, BID
     Route: 048
     Dates: start: 20201202
  29. RIVOTRIL [Concomitant]
     Active Substance: CLONAZEPAM
     Indication: Trigeminal neuralgia
     Dosage: 0.5 MG, Q8H
     Route: 048
     Dates: start: 20191016, end: 20191018
  30. RIVOTRIL [Concomitant]
     Active Substance: CLONAZEPAM
     Dosage: 0.5 MG, Q8H
     Route: 048
     Dates: start: 20200327, end: 20201202
  31. CARBAMAZEPINE [Concomitant]
     Active Substance: CARBAMAZEPINE
     Indication: Trigeminal neuralgia
     Dosage: 200 MG, Q12H
     Route: 048
     Dates: start: 20191018, end: 20191023
  32. VALACYCLOVIR HYDROCHLORIDE [Concomitant]
     Active Substance: VALACYCLOVIR HYDROCHLORIDE
     Indication: Herpes zoster
     Dosage: 1000 MG, TID
     Route: 048
     Dates: start: 20200309, end: 20200316
  33. EMLA [Concomitant]
     Active Substance: LIDOCAINE\PRILOCAINE
     Indication: Trigeminal neuralgia
     Dosage: 25 MG/G, TID
     Route: 061
     Dates: start: 20200330, end: 20201007

REACTIONS (1)
  - Cholecystitis chronic [Recovered/Resolved]

NARRATIVE: CASE EVENT DATE: 20200725
